FAERS Safety Report 6407598-2 (Version None)
Quarter: 2009Q4

REPORT INFORMATION
  Report Type: 
  Country: None (occurrence: None)
  Receive Date: 20091020
  Receipt Date: 20091019
  Transmission Date: 20100525
  Serious: Yes (Hospitalization)
  Sender: FDA-Public Use
  Company Number: FR-WYE-G04657009

PATIENT
  Age: 80 Year
  Sex: Male

DRUGS (1)
  1. RHINADVIL [Suspect]
     Indication: NASOPHARYNGITIS
     Route: 048
     Dates: start: 20091001, end: 20091001

REACTIONS (2)
  - MEDICATION ERROR [None]
  - URINARY RETENTION [None]
